FAERS Safety Report 12933886 (Version 1)
Quarter: 2016Q4

REPORT INFORMATION
  Report Type: Spontaneous
  Country: US (occurrence: US)
  Receive Date: 20161111
  Receipt Date: 20161111
  Transmission Date: 20170207
  Serious: No
  Sender: FDA-Public Use
  Company Number: US-009507513-1611USA004910

PATIENT
  Age: 61 Year
  Sex: Male

DRUGS (3)
  1. DEXAMETHASONE. [Suspect]
     Active Substance: DEXAMETHASONE
     Indication: HEPATIC AMYLOIDOSIS
     Dosage: UNK
     Route: 048
  2. CYCLOPHOSPHAMIDE. [Suspect]
     Active Substance: CYCLOPHOSPHAMIDE
     Indication: HEPATIC AMYLOIDOSIS
     Dosage: UNK
  3. BORTEZOMIB [Suspect]
     Active Substance: BORTEZOMIB
     Indication: HEPATIC AMYLOIDOSIS
     Dosage: UNK

REACTIONS (1)
  - Drug ineffective [Unknown]
